FAERS Safety Report 4299996-0 (Version None)
Quarter: 2004Q1

REPORT INFORMATION
  Report Type: 
  Country: None (occurrence: None)
  Receive Date: 20040219
  Receipt Date: 20040212
  Transmission Date: 20041129
  Serious: Yes (Hospitalization)
  Sender: FDA-Public Use
  Company Number: PERIO-2004-0011

PATIENT
  Age: 58 Year
  Sex: Female
  Weight: 76.2043 kg

DRUGS (6)
  1. PERIOSTAT [Suspect]
     Indication: OSTEOPENIA
     Dosage: 20 MG, BID, PER ORAL
     Route: 048
     Dates: start: 20030424, end: 20031213
  2. CALCIUM 600 MG + VITAMIN D 200IU/WALGREENS [Suspect]
     Indication: OSTEOPENIA
     Dosage: BID, PER ORAL
     Route: 048
     Dates: start: 20030424, end: 20031213
  3. CALCIUM 600 MG + VITAMIN D 200IU/WALGREENS [Suspect]
     Indication: OSTEOPENIA
     Dosage: BID, PER ORAL
     Route: 048
     Dates: start: 20040203
  4. TYLENOL PM (TYLENOL PM) [Concomitant]
  5. TUMS (TUMS) [Concomitant]
  6. ZANTAC [Concomitant]

REACTIONS (2)
  - CHOLELITHIASIS [None]
  - PANCREATITIS ACUTE [None]
